FAERS Safety Report 7577845-2 (Version None)
Quarter: 2011Q2

REPORT INFORMATION
  Report Type: 
  Country: None (occurrence: None)
  Receive Date: 20110628
  Receipt Date: 20110614
  Transmission Date: 20111010
  Serious: Yes (Hospitalization)
  Sender: FDA-Public Use
  Company Number: US-ROCHE-774615

PATIENT
  Sex: Female
  Weight: 64 kg

DRUGS (3)
  1. HERCEPTIN [Suspect]
     Route: 042
     Dates: start: 20100316, end: 20110105
  2. CARBOPLATIN [Concomitant]
     Indication: BREAST CANCER
     Dates: start: 20100301
  3. TAXOTERE [Concomitant]
     Indication: BREAST CANCER
     Dates: start: 20100609

REACTIONS (3)
  - MOVEMENT DISORDER [None]
  - NEUROLOGICAL SYMPTOM [None]
  - DYSKINESIA [None]
